FAERS Safety Report 4382409-8 (Version None)
Quarter: 2004Q2

REPORT INFORMATION
  Report Type: 
  Country: None (occurrence: None)
  Receive Date: 20040621
  Receipt Date: 20040602
  Transmission Date: 20050107
  Serious: Yes (Hospitalization)
  Sender: FDA-Public Use
  Company Number: 2004BL004189

PATIENT
  Sex: Male

DRUGS (1)
  1. ATROPINE [Suspect]

REACTIONS (2)
  - CONFUSIONAL STATE [None]
  - PSYCHOTIC DISORDER [None]
